FAERS Safety Report 8109028-1 (Version None)
Quarter: 2012Q1

REPORT INFORMATION
  Report Type: 
  Country: None (occurrence: None)
  Receive Date: 20120202
  Receipt Date: 20120109
  Transmission Date: 20120608
  Serious: No
  Sender: FDA-Public Use
  Company Number: US-AMGEN-USASP2012000783

PATIENT
  Age: 68 Year
  Sex: Female

DRUGS (4)
  1. ENBREL [Suspect]
     Indication: RHEUMATOID ARTHRITIS
     Dosage: 25 MG, QWK
     Dates: start: 20000101
  2. METHOTREXATE [Concomitant]
     Dosage: 1 MG, UNK WEEKLY
     Dates: start: 19900101
  3. HUMIRA [Concomitant]
  4. REMICADE [Concomitant]
     Dosage: UNK

REACTIONS (7)
  - NASAL SEPTAL OPERATION [None]
  - NASOPHARYNGITIS [None]
  - ALOPECIA [None]
  - DRUG INEFFECTIVE [None]
  - TURBINECTOMY [None]
  - SQUAMOUS CELL CARCINOMA [None]
  - RHEUMATOID ARTHRITIS [None]
